FAERS Safety Report 6063415-4 (Version None)
Quarter: 2009Q1

REPORT INFORMATION
  Report Type: 
  Country: None (occurrence: None)
  Receive Date: 20090129
  Receipt Date: 20090113
  Transmission Date: 20090719
  Serious: Yes (Hospitalization)
  Sender: FDA-Public Use
  Company Number: KV200801344

PATIENT
  Age: 77 Year
  Sex: Female
  Weight: 79.4 kg

DRUGS (8)
  1. PROPAFENONE HYDROCHLORIDE (PROPRAFENONE HYDROCHLORIDE)  150MG [Suspect]
     Indication: ATRIAL FIBRILLATION
     Dosage: 150 MG, TID, ORAL
     Route: 048
     Dates: start: 20080108, end: 20081114
  2. COUMADIN [Concomitant]
  3. LEVOTHYROXINE SODIUM [Concomitant]
  4. TRICOR /00499301/ (FENOFIBRATE) [Concomitant]
  5. COZAAR [Concomitant]
  6. ASPIRIN [Concomitant]
  7. METOPRLOL (METOPROLOL) [Concomitant]
  8. HYZAAR            /01284801/ (HYDOCHLOROTHIAZIDE, LOSARTAN POTASSIUM) [Concomitant]

REACTIONS (10)
  - ANXIETY [None]
  - ATRIAL FIBRILLATION [None]
  - CHEST PAIN [None]
  - DYSPNOEA [None]
  - ERYTHEMA [None]
  - FATIGUE [None]
  - FLUSHING [None]
  - HYPERSENSITIVITY [None]
  - HYPOTENSION [None]
  - THROAT TIGHTNESS [None]
